FAERS Safety Report 19068654 (Version 1)
Quarter: 2021Q1

REPORT INFORMATION
  Report Type: Spontaneous
  Country: US (occurrence: US)
  Receive Date: 20210329
  Receipt Date: 20210329
  Transmission Date: 20210420
  Serious: Yes (Life-Threatening, Hospitalization)
  Sender: FDA-Public Use
  Company Number: US-TEVA-2021-US-1893808

PATIENT
  Age: 23 Year
  Sex: Male

DRUGS (1)
  1. IBUPROFEN. [Suspect]
     Active Substance: IBUPROFEN
     Indication: SUICIDE ATTEMPT
     Dosage: ESTIMATED DOSE OF APPROXIMATELY 100 GRAMS OR 1470 MG/KG
     Route: 048

REACTIONS (11)
  - Agitation [Recovered/Resolved]
  - Toxicity to various agents [Recovered/Resolved]
  - Renal injury [Recovered/Resolved]
  - Suicide attempt [Unknown]
  - Electrocardiogram QT prolonged [Recovered/Resolved]
  - Unresponsive to stimuli [Recovered/Resolved]
  - Bradycardia [Recovered/Resolved]
  - Intentional overdose [Unknown]
  - Gastrointestinal haemorrhage [Recovered/Resolved]
  - Delirium [Recovered/Resolved]
  - Metabolic acidosis [Recovered/Resolved]
